FAERS Safety Report 4401459-6 (Version None)
Quarter: 2004Q3

REPORT INFORMATION
  Report Type: 
  Country: None (occurrence: None)
  Receive Date: 20040907
  Receipt Date: 20040511
  Transmission Date: 20050211
  Serious: No
  Sender: FDA-Public Use
  Company Number: US-BRISTOL-MYERS SQUIBB COMPANY-12585329

PATIENT
  Age: 73 Year
  Sex: Female
  Weight: 73 kg

DRUGS (3)
  1. COUMADIN [Suspect]
     Indication: HIP SURGERY
     Route: 048
     Dates: start: 20040507
  2. PERCOCET [Concomitant]
  3. LAXATIVES [Concomitant]

REACTIONS (1)
  - SKIN BURNING SENSATION [None]
